FAERS Safety Report 7893278-3 (Version None)
Quarter: 2011Q4

REPORT INFORMATION
  Report Type: 
  Country: None (occurrence: None)
  Receive Date: 20111104
  Receipt Date: 20111026
  Transmission Date: 20120403
  Serious: Yes (Hospitalization)
  Sender: FDA-Public Use
  Company Number: US-JNJFOC-20111012546

PATIENT
  Sex: Female
  Weight: 31.8 kg

DRUGS (4)
  1. ALBUTEROL [Concomitant]
  2. PREDNISONE [Concomitant]
  3. OMEPRAZOLE [Concomitant]
  4. INFLIXIMAB, RECOMBINANT [Suspect]
     Indication: INFLAMMATORY BOWEL DISEASE
     Route: 042
     Dates: start: 20110601

REACTIONS (2)
  - ABDOMINAL PAIN [None]
  - HYPOXIA [None]
